FAERS Safety Report 6258575-6 (Version None)
Quarter: 2009Q3

REPORT INFORMATION
  Report Type: 
  Country: None (occurrence: None)
  Receive Date: 20090707
  Receipt Date: 20090629
  Transmission Date: 20100115
  Serious: Yes (Other)
  Sender: FDA-Public Use
  Company Number: US-ROCHE-641309

PATIENT
  Sex: Female
  Weight: 61.2 kg

DRUGS (1)
  1. CAPECITABINE [Suspect]
     Indication: BREAST CANCER
     Dosage: TAKEN 2 TABLETS AM AND 1 TABLET PM.
     Route: 048
     Dates: start: 20080512, end: 20090629

REACTIONS (1)
  - BREAST CANCER [None]
